FAERS Safety Report 10335795 (Version 2)
Quarter: 2014Q3

REPORT INFORMATION
  Report Type: Spontaneous
  Country: US (occurrence: US)
  Receive Date: 20140723
  Receipt Date: 20140723
  Transmission Date: 20150326
  Serious: No
  Sender: FDA-Public Use
  Company Number: US-UNITED THERAPEUTICS-UTC-048306

PATIENT
  Age: 24 Year
  Sex: Female
  Weight: 50.34 kg

DRUGS (3)
  1. FLOLAN [Concomitant]
     Active Substance: EPOPROSTENOL SODIUM
  2. REMODULIN [Suspect]
     Active Substance: TREPROSTINIL
     Dosage: 0.016 UG/KG/MINUTE
     Route: 041
     Dates: start: 20140422
  3. ADCIRCA [Concomitant]
     Active Substance: TADALAFIL

REACTIONS (14)
  - Fatigue [Unknown]
  - Abdominal pain [Unknown]
  - Nausea [Unknown]
  - Dyspnoea exertional [Unknown]
  - Headache [Unknown]
  - Weight decreased [Unknown]
  - Dyspnoea [Unknown]
  - Asthenia [Unknown]
  - Decreased appetite [Unknown]
  - Pain in jaw [Unknown]
  - Depression [Unknown]
  - Cough [Unknown]
  - Diarrhoea [Unknown]
  - Palpitations [Unknown]

NARRATIVE: CASE EVENT DATE: 201404
